FAERS Safety Report 5207539-X (Version None)
Quarter: 2006Q4

REPORT INFORMATION
  Report Type: 
  Country: None (occurrence: None)
  Receive Date: 20061030
  Receipt Date: 20060721
  Transmission Date: 20070319
  Serious: No
  Sender: FDA-Public Use
  Company Number: 2006CT000652

PATIENT
  Age: 49 Year
  Sex: Female
  Weight: 40.8237 kg

DRUGS (5)
  1. VENTAVIS [Suspect]
     Indication: PULMONARY HYPERTENSION
     Dosage: 5 UG; INH
     Route: 055
     Dates: start: 20060530
  2. RITUXAN [Suspect]
     Indication: SCLERODERMA
     Dosage: IV
     Route: 042
  3. CELLCEPT [Suspect]
     Indication: SCLERODERMA
     Dosage: 500 MG; PO
     Route: 048
  4. PREDNISONE [Concomitant]
  5. CALTRATE [Concomitant]

REACTIONS (4)
  - DIZZINESS [None]
  - DRY EYE [None]
  - DRY MOUTH [None]
  - FATIGUE [None]
